FAERS Safety Report 7667899-7 (Version None)
Quarter: 2011Q3

REPORT INFORMATION
  Report Type: 
  Country: None (occurrence: None)
  Receive Date: 20110808
  Receipt Date: 20110726
  Transmission Date: 20111222
  Serious: Yes (Other)
  Sender: FDA-Public Use
  Company Number: FR-AMGEN-FRASP2011020687

PATIENT
  Age: 61 Year
  Sex: Male
  Weight: 105 kg

DRUGS (8)
  1. JOSACIN                            /00273601/ [Interacting]
     Indication: INFLUENZA
  2. OMEPRAZOLE [Concomitant]
     Dosage: 20 UNK, AS NEEDED
  3. CRESTOR [Concomitant]
     Dosage: 5 UNK, 1X/DAY
  4. SITAGLIPTIN PHOSPHATE [Concomitant]
     Dosage: 100 UNK, 1X/DAY
  5. IRBESARTAN [Concomitant]
     Dosage: 150 UNK, 1X/DAY
  6. JOSACIN                            /00273601/ [Interacting]
     Indication: BRONCHITIS
     Dosage: 1000 MG, BID
     Dates: start: 20110404, end: 20110409
  7. ENBREL [Suspect]
     Indication: RHEUMATOID ARTHRITIS
     Dosage: 50 MG, 2X/MONTH
     Route: 042
     Dates: start: 20070101
  8. METFORMIN HCL [Concomitant]
     Dosage: 1000 UNK, 2X/DAY

REACTIONS (6)
  - RHEUMATOID ARTHRITIS [None]
  - INFLUENZA [None]
  - ABDOMINAL PAIN UPPER [None]
  - DRUG INTERACTION [None]
  - COLITIS [None]
  - BRONCHITIS [None]
